FAERS Safety Report 24766663 (Version 1)
Quarter: 2024Q4

REPORT INFORMATION
  Report Type: Spontaneous
  Country: IL (occurrence: IL)
  Receive Date: 20241223
  Receipt Date: 20241223
  Transmission Date: 20250115
  Serious: Yes (Hospitalization)
  Sender: ASCENT PHARMACEUTICALS INC
  Company Number: IL-ASCENT-2024ASLIT00085

PATIENT
  Age: 26 Year
  Sex: Male

DRUGS (1)
  1. OXYCODONE AND ACETAMINOPHEN [Suspect]
     Active Substance: ACETAMINOPHEN\OXYCODONE HYDROCHLORIDE
     Indication: Product used for unknown indication
     Route: 045

REACTIONS (6)
  - Leukocytosis [Unknown]
  - Inflammation [Unknown]
  - Thrombocytosis [Unknown]
  - Intentional product use issue [Unknown]
  - Drug abuse [Unknown]
  - Wrong technique in product usage process [Unknown]
